FAERS Safety Report 24376542 (Version 1)
Quarter: 2024Q3

REPORT INFORMATION
  Report Type: Spontaneous
  Country: US (occurrence: US)
  Receive Date: 20240930
  Receipt Date: 20240930
  Transmission Date: 20241016
  Serious: Yes (Hospitalization, Other)
  Sender: Haleon PLC
  Company Number: US-HALEON-2198648

PATIENT
  Age: 30 Year
  Sex: Female

DRUGS (2)
  1. TUMS [Suspect]
     Active Substance: CALCIUM CARBONATE
     Indication: Gastrooesophageal reflux disease
     Dosage: SHE WAS INGESTING 7 GRAMS DAILY FOR APPROXIMATELY 6 - 8 WEEKS
     Route: 048
  2. MAGNESIUM [Concomitant]
     Active Substance: MAGNESIUM
     Indication: Seizure prophylaxis

REACTIONS (7)
  - Pancreatitis acute [Unknown]
  - Exposure during pregnancy [Unknown]
  - Hypercalcaemia [Unknown]
  - Milk-alkali syndrome [Unknown]
  - Premature delivery [Unknown]
  - Abdominal distension [Unknown]
  - Lethargy [Unknown]
